FAERS Safety Report 6531440-2 (Version None)
Quarter: 2010Q1

REPORT INFORMATION
  Report Type: 
  Country: None (occurrence: None)
  Receive Date: 20100108
  Receipt Date: 20091203
  Transmission Date: 20100710
  Serious: No
  Sender: FDA-Public Use
  Company Number: A0833193A

PATIENT
  Age: 58 Year
  Sex: Female

DRUGS (2)
  1. TYKERB [Suspect]
     Indication: BREAST CANCER
     Dosage: 4CAP PER DAY
     Route: 048
     Dates: start: 20091027
  2. NO CONCURRENT MEDICATION [Concomitant]

REACTIONS (6)
  - DYSGEUSIA [None]
  - FATIGUE [None]
  - PARAESTHESIA [None]
  - RASH [None]
  - RASH GENERALISED [None]
  - STOMATITIS [None]
